FAERS Safety Report 11105308 (Version 1)
Quarter: 2015Q2

REPORT INFORMATION
  Report Type: Report from Study
  Country: IT (occurrence: IT)
  Receive Date: 20150512
  Receipt Date: 20150512
  Transmission Date: 20150821
  Serious: Yes (Other)
  Sender: FDA-Public Use
  Company Number: IT-MYLANLABS-2015M1015446

PATIENT

DRUGS (5)
  1. CISPLATIN. [Suspect]
     Active Substance: CISPLATIN
     Indication: PROPHYLACTIC CHEMOTHERAPY
     Dosage: 25 MG/M2/L OF PERFUSATE
     Route: 033
  2. MITOMYCIN. [Suspect]
     Active Substance: MITOMYCIN
     Indication: PROPHYLACTIC CHEMOTHERAPY
     Dosage: 3.3 MG/M2/L OF PERFUSATE
     Route: 033
  3. SODIUM CHLORIDE. [Concomitant]
     Active Substance: SODIUM CHLORIDE
     Route: 033
  4. EMAGEL [Concomitant]
     Route: 033
  5. SODIUM CHLORIDE. [Concomitant]
     Active Substance: SODIUM CHLORIDE
     Indication: PERITONEAL LAVAGE
     Dosage: 0.9%
     Route: 033

REACTIONS (1)
  - Hepatic failure [Unknown]
